FAERS Safety Report 9122428 (Version 1)
Quarter: 2013Q1

REPORT INFORMATION
  Report Type: Spontaneous
  Country: MX (occurrence: MX)
  Receive Date: 20130227
  Receipt Date: 20130227
  Transmission Date: 20140127
  Serious: Yes (Death)
  Sender: FDA-Public Use
  Company Number: PHHY2013MX018978

PATIENT
  Sex: Male

DRUGS (2)
  1. CO-DIOVAN [Suspect]
     Indication: HYPERTENSION
     Dosage: 2 DF, (160 MG VALS AND 12.5 MG HCTZ), DAILY
     Route: 048
  2. CO-DIOVAN [Suspect]
     Dosage: 1 DF (160 MG VALS AND 12.5 MG HCTZ), DAILY
     Route: 048

REACTIONS (1)
  - Septic shock [Fatal]
